FAERS Safety Report 4511219-3 (Version None)
Quarter: 2004Q4

REPORT INFORMATION
  Report Type: 
  Country: None (occurrence: None)
  Receive Date: 20041122
  Receipt Date: 20041122
  Transmission Date: 20050328
  Serious: No
  Sender: FDA-Public Use
  Company Number: None

PATIENT
  Age: 40 Year
  Sex: Female
  Weight: 58.0604 kg

DRUGS (2)
  1. EFFEXOR [Suspect]
     Indication: ANXIETY
     Dosage: 150    1 DAY   ORAL
     Route: 048
  2. DIOVAN [Concomitant]

REACTIONS (2)
  - CARDIAC DISORDER [None]
  - HYPERTENSION [None]
